FAERS Safety Report 12890842 (Version 1)
Quarter: 2016Q4

REPORT INFORMATION
  Report Type: Spontaneous
  Country: US (occurrence: US)
  Receive Date: 20161025
  Receipt Date: 20161025
  Transmission Date: 20170207
  Serious: No
  Sender: FDA-Public Use
  Company Number: None

PATIENT
  Age: 56 Year
  Sex: Male

DRUGS (1)
  1. HUMIRA [Suspect]
     Active Substance: ADALIMUMAB
     Indication: RHEUMATOID ARTHRITIS
     Dosage: 40MG EVERY OTHER WEEK
     Route: 058
     Dates: start: 20160627

REACTIONS (4)
  - Decreased appetite [None]
  - Abdominal distension [None]
  - Ocular hyperaemia [None]
  - Peripheral swelling [None]

NARRATIVE: CASE EVENT DATE: 20161005
